FAERS Safety Report 5679671-8 (Version None)
Quarter: 2008Q1

REPORT INFORMATION
  Report Type: 
  Country: None (occurrence: None)
  Receive Date: 20080320
  Receipt Date: 20080313
  Transmission Date: 20080703
  Serious: Yes (Death)
  Sender: FDA-Public Use
  Company Number: 430007E07ITA

PATIENT
  Age: 72 Year
  Sex: Male

DRUGS (6)
  1. NOVANTRONE [Suspect]
     Indication: ACUTE MYELOID LEUKAEMIA
     Dosage: 7 MG/M2, 1 IN 1 DAYS, INTRAVENOUS (NOT OTHERWISE SPECIFIED)
     Route: 042
     Dates: start: 20070612, end: 20070612
  2. CYTARABINE [Suspect]
     Indication: ACUTE MYELOID LEUKAEMIA
     Dosage: 700 MG, INTRAVENOUS (NOT OTHERWISE SPECIFIED)
     Route: 042
     Dates: start: 20070608, end: 20070614
  3. ETOPOSIDE [Suspect]
     Indication: ACUTE MYELOID LEUKAEMIA
     Dosage: 30 MG, MG, INTRAVENOUS (NOT OTHERWISE SPECIFIED)
     Route: 042
     Dates: start: 20070608, end: 20070610
  4. PIPERACILLIN AND TAZOBACTAM [Concomitant]
  5. NEUPOGEN [Concomitant]
  6. LINEZOLID [Concomitant]

REACTIONS (1)
  - ENCEPHALITIS [None]
